FAERS Safety Report 5141768-9 (Version None)
Quarter: 2006Q4

REPORT INFORMATION
  Report Type: 
  Country: None (occurrence: None)
  Receive Date: 20061027
  Receipt Date: 20061012
  Transmission Date: 20070319
  Serious: Yes (Death, Hospitalization)
  Sender: FDA-Public Use
  Company Number: AR200609001664

PATIENT
  Age: 35 Year
  Sex: Female

DRUGS (10)
  1. XIGRIS [Suspect]
     Indication: UROSEPSIS
     Dates: start: 20060901, end: 20060903
  2. HEPARIN [Concomitant]
  3. VALPROIC ACID [Concomitant]
  4. NORADRENALINE (NOREPINEPHRINE) [Concomitant]
  5. FUROSEMIDE [Concomitant]
  6. REMIFENTANIL (REMIFENTANIL) [Concomitant]
  7. MIDAZOLAM HCL [Concomitant]
  8. PIPERACILLIN W/TAZOBACTAM (PIPERACILLIN, TAZOBACTAM) [Concomitant]
  9. AMIKACIN [Concomitant]
  10. RANITIDINE [Concomitant]

REACTIONS (5)
  - BRAIN DEATH [None]
  - HAEMORRHAGE INTRACRANIAL [None]
  - INTRAVENTRICULAR HAEMORRHAGE [None]
  - THROMBOCYTOPENIA [None]
  - VASCULITIS CEREBRAL [None]
